FAERS Safety Report 9528275 (Version 1)
Quarter: 2013Q1

REPORT INFORMATION
  Report Type: Spontaneous
  Country: US (occurrence: None)
  Receive Date: 20130314
  Receipt Date: 20130314
  Transmission Date: 20140127
  Serious: No
  Sender: FDA-Public Use
  Company Number: 1212USA000442

PATIENT
  Age: 63 Year
  Sex: Female
  Weight: 53.5 kg

DRUGS (8)
  1. VICTRELIS (BOCEPREVIR) CAPSULE, 200MG [Suspect]
     Dosage: 4 CAPSULES, TID, ORAL
  2. PEGASYS (PEGINTERFERON ALFA-2A) INJECTION [Suspect]
     Route: 058
  3. RIBAVIRIN (RIBAVIRIN) TABLET, 200MG [Suspect]
     Route: 048
  4. GABAPENTIN (GABAPENTIN) [Concomitant]
  5. CITALOPRAM (CITALOPRAM) [Concomitant]
  6. MIRTAZAPINE (MIRTAZAPINE) [Concomitant]
  7. IBUPROFEN (IBUPROFEN) [Concomitant]
  8. HYDROXYZINE HYDROCHLORIDE (HYDROXYZINE HYDROCHLORIDE) [Concomitant]

REACTIONS (2)
  - Nausea [None]
  - Insomnia [None]
